FAERS Safety Report 13986681 (Version 4)
Quarter: 2017Q4

REPORT INFORMATION
  Report Type: Spontaneous
  Country: US (occurrence: US)
  Receive Date: 20170919
  Receipt Date: 20171121
  Transmission Date: 20180321
  Serious: No
  Sender: FDA-Public Use
  Company Number: US-GLAXOSMITHKLINE-US2017GSK144388

PATIENT
  Sex: Male

DRUGS (1)
  1. FLOVENT [Suspect]
     Active Substance: FLUTICASONE PROPIONATE
     Indication: EOSINOPHILIC OESOPHAGITIS
     Dosage: 2 PUFF(S), BID
     Route: 048

REACTIONS (6)
  - Product quality issue [Unknown]
  - Incorrect route of drug administration [Unknown]
  - Wrong technique in device usage process [Unknown]
  - Product use in unapproved indication [Unknown]
  - Underdose [Unknown]
  - Wrong technique in product usage process [Unknown]
